FAERS Safety Report 5623303-1 (Version None)
Quarter: 2008Q1

REPORT INFORMATION
  Report Type: 
  Country: None (occurrence: None)
  Receive Date: 20080206
  Receipt Date: 20080130
  Transmission Date: 20080703
  Serious: No
  Sender: FDA-Public Use
  Company Number: CHPA2008US01505

PATIENT
  Age: 46 Year
  Sex: Female
  Weight: 31.8879 kg

DRUGS (4)
  1. VAGISTAT-1 [Suspect]
     Indication: VULVOVAGINAL MYCOTIC INFECTION
     Dosage: 300 MG, ONCE/SINGLE, VAGINAL
     Route: 067
     Dates: start: 20080122, end: 20080122
  2. EFFEXOR XR [Concomitant]
  3. TOPAMAX [Concomitant]
  4. VERAPAMIL [Concomitant]

REACTIONS (1)
  - VAGINAL HAEMORRHAGE [None]
